FAERS Safety Report 7997933-6 (Version None)
Quarter: 2011Q4

REPORT INFORMATION
  Report Type: 
  Country: None (occurrence: None)
  Receive Date: 20111213
  Receipt Date: 20111202
  Transmission Date: 20120403
  Serious: Yes (Other)
  Sender: FDA-Public Use
  Company Number: 11-033

PATIENT
  Age: 39 Year
  Sex: Female

DRUGS (1)
  1. ALLERGEN EXTRACTS [Suspect]
     Indication: IMMUNOMODULATORY THERAPY
     Dosage: MULTIPLE
     Dates: start: 20111025

REACTIONS (2)
  - COUGH [None]
  - PRURITUS [None]
